FAERS Safety Report 7690903-7 (Version None)
Quarter: 2011Q3

REPORT INFORMATION
  Report Type: 
  Country: None (occurrence: None)
  Receive Date: 20110818
  Receipt Date: 20110818
  Transmission Date: 20111222
  Serious: Yes (Other)
  Sender: FDA-Public Use
  Company Number: None

PATIENT
  Sex: Female
  Weight: 62.595 kg

DRUGS (1)
  1. OCELLA 28 TABLET [Suspect]
     Indication: MENSTRUAL DISORDER
     Dosage: 1 PILL
     Route: 048
     Dates: start: 20110329, end: 20110817

REACTIONS (4)
  - TEMPERATURE INTOLERANCE [None]
  - ERYTHEMA [None]
  - PRODUCT SUBSTITUTION ISSUE [None]
  - HYPERHIDROSIS [None]
